FAERS Safety Report 7618274-2 (Version None)
Quarter: 2011Q3

REPORT INFORMATION
  Report Type: 
  Country: None (occurrence: None)
  Receive Date: 20110718
  Receipt Date: 20110711
  Transmission Date: 20111222
  Serious: Yes (Other)
  Sender: FDA-Public Use
  Company Number: US-B.I. PHARMACEUTICALS,INC./RIDGEFIELD-2011-BP-15351BP

PATIENT
  Age: 79 Year
  Sex: Female
  Weight: 63.5 kg

DRUGS (15)
  1. PRADAXA [Suspect]
     Indication: ATRIAL FIBRILLATION
     Dosage: 150 MG
     Route: 048
     Dates: start: 20110414, end: 20110610
  2. COUMADIN [Concomitant]
     Dosage: 3 MG
     Route: 048
  3. NAPHCON-A [Concomitant]
     Route: 061
  4. ASPIRIN [Concomitant]
     Dosage: 81 MG
     Route: 048
  5. SIMVASTATIN [Concomitant]
     Dosage: 20 MG
     Route: 048
  6. OMEPRAZOLE [Concomitant]
     Dosage: 20 MG
     Route: 048
  7. LASIX [Concomitant]
     Dosage: 10 MG
     Route: 048
  8. ELOCON [Concomitant]
     Route: 061
  9. COREG [Concomitant]
     Dosage: 12.5 MG
     Route: 048
  10. LACTULOSE [Concomitant]
     Dosage: 15 ML
     Route: 048
  11. KLOR-CON [Concomitant]
     Dosage: 30 MEQ
     Route: 048
  12. LEVOTHYROXINE SODIUM [Concomitant]
     Dosage: 100 MCG
     Route: 048
  13. CITALOPRAM HYDROBROMIDE [Concomitant]
     Dosage: 10 MG
     Route: 048
  14. MULTI-VITAMIN [Concomitant]
     Route: 048
  15. PREDNISONE [Concomitant]
     Dosage: 5 MG
     Route: 048

REACTIONS (3)
  - LIMB INJURY [None]
  - DEEP VEIN THROMBOSIS [None]
  - PAIN IN EXTREMITY [None]
